FAERS Safety Report 10004717 (Version 2)
Quarter: 2014Q2

REPORT INFORMATION
  Report Type: Spontaneous
  Country: US (occurrence: US)
  Receive Date: 20140312
  Receipt Date: 20140407
  Transmission Date: 20141212
  Serious: Yes (Hospitalization)
  Sender: FDA-Public Use
  Company Number: US-GLAXOSMITHKLINE-A1063561A

PATIENT
  Age: 51 Year
  Sex: Female

DRUGS (8)
  1. VENTOLIN [Suspect]
     Indication: ASTHMA
     Dosage: 1PUFF FOUR TIMES PER DAY
     Route: 055
     Dates: start: 2011
  2. ATROVENT [Concomitant]
  3. LORAZEPAM [Concomitant]
  4. MECLIZINE [Concomitant]
  5. AMLODIPINE [Concomitant]
  6. AMBIEN [Concomitant]
  7. PREMPRO [Concomitant]
  8. HYDROCODONE [Concomitant]

REACTIONS (2)
  - Bronchitis [Recovered/Resolved]
  - Oxygen saturation decreased [Unknown]
